FAERS Safety Report 6017452-6 (Version None)
Quarter: 2008Q4

REPORT INFORMATION
  Report Type: 
  Country: None (occurrence: None)
  Receive Date: 20081223
  Receipt Date: 20081215
  Transmission Date: 20090506
  Serious: Yes (Other)
  Sender: FDA-Public Use
  Company Number: CA-JNJFOC-20080902893

PATIENT
  Sex: Female
  Weight: 73 kg

DRUGS (4)
  1. REMICADE [Suspect]
     Route: 042
  2. REMICADE [Suspect]
     Indication: RHEUMATOID ARTHRITIS
     Route: 042
  3. BENADRYL [Concomitant]
     Route: 048
  4. ACETAMINOPHEN [Concomitant]
     Dosage: ONE TIME
     Route: 048

REACTIONS (6)
  - BURNING SENSATION [None]
  - INFUSION RELATED REACTION [None]
  - NAUSEA [None]
  - OPEN WOUND [None]
  - PRURITUS [None]
  - RASH [None]
